FAERS Safety Report 13886206 (Version 1)
Quarter: 2017Q3

REPORT INFORMATION
  Report Type: Report from Study
  Country: US (occurrence: US)
  Receive Date: 20170821
  Receipt Date: 20170821
  Transmission Date: 20171127
  Serious: No
  Sender: FDA-Public Use
  Company Number: PHEH2017US026236

PATIENT
  Sex: Male

DRUGS (2)
  1. ENTRESTO [Suspect]
     Active Substance: SACUBITRIL\VALSARTAN
     Indication: PRODUCT USED FOR UNKNOWN INDICATION
     Dosage: 1 DF (24 MG SACUBITRIL/26 MG VALSARTAN), BID
     Route: 048
     Dates: start: 20170628
  2. XANAX [Concomitant]
     Active Substance: ALPRAZOLAM
     Indication: PALPITATIONS
     Dosage: 0.5 MG, PRN
     Route: 065

REACTIONS (3)
  - Hypertriglyceridaemia [Unknown]
  - Fatigue [Unknown]
  - Dizziness [Unknown]
